FAERS Safety Report 5331133-3 (Version None)
Quarter: 2007Q2

REPORT INFORMATION
  Report Type: 
  Country: None (occurrence: None)
  Receive Date: 20070522
  Receipt Date: 20070514
  Transmission Date: 20071010
  Serious: Yes (Hospitalization)
  Sender: FDA-Public Use
  Company Number: US-AVENTIS-200713600US

PATIENT
  Sex: Female
  Weight: 181 kg

DRUGS (3)
  1. LANTUS [Suspect]
     Dosage: DOSE: 100-260
     Route: 051
     Dates: start: 20060101
  2. HUMALOG                            /00030501/ [Concomitant]
     Dosage: DOSE: UNK; FREQUENCY: BEFORE MEALS
  3. UNKNOWN DRUG [Concomitant]
     Dosage: DOSE: UNK

REACTIONS (3)
  - DRUG INEFFECTIVE [None]
  - HYPERGLYCAEMIA [None]
  - KETOSIS [None]
